FAERS Safety Report 9100782 (Version 1)
Quarter: 2013Q1

REPORT INFORMATION
  Report Type: Spontaneous
  Country: FR (occurrence: FR)
  Receive Date: 20130215
  Receipt Date: 20130215
  Transmission Date: 20140127
  Serious: Yes (Hospitalization, Other)
  Sender: FDA-Public Use
  Company Number: FR-CELGENEUS-056-C4047-12102917

PATIENT
  Age: 64 Year
  Sex: Female
  Weight: 42 kg

DRUGS (3)
  1. CC-4047 [Suspect]
     Indication: PLASMA CELL MYELOMA
     Dosage: 4 MILLIGRAM
     Route: 048
     Dates: start: 201209
  2. DEXAMETHASONE [Concomitant]
     Indication: PLASMA CELL MYELOMA
     Dosage: 40 MILLIGRAM
     Route: 065
     Dates: start: 201209
  3. KARDEGIC [Concomitant]
     Indication: PROPHYLAXIS
     Dosage: 75 MILLIGRAM
     Route: 065

REACTIONS (2)
  - Spinal compression fracture [Unknown]
  - Anaemia [Unknown]
